FAERS Safety Report 7234296-8 (Version None)
Quarter: 2011Q1

REPORT INFORMATION
  Report Type: 
  Country: None (occurrence: None)
  Receive Date: 20110119
  Receipt Date: 20110110
  Transmission Date: 20110831
  Serious: Yes (Hospitalization, Other)
  Sender: FDA-Public Use
  Company Number: US-NAPPMUNDI-USA-2010-0061805

PATIENT
  Sex: Female

DRUGS (1)
  1. OXYCONTIN [Suspect]
     Indication: PAIN
     Dosage: 30 MG, TID

REACTIONS (4)
  - MALIGNANT MELANOMA [None]
  - NERVE COMPRESSION [None]
  - PAIN [None]
  - DRUG EFFECT DECREASED [None]
